FAERS Safety Report 20579447 (Version 1)
Quarter: 2022Q1

REPORT INFORMATION
  Report Type: Spontaneous
  Country: US (occurrence: US)
  Receive Date: 20220310
  Receipt Date: 20220310
  Transmission Date: 20220424
  Serious: Yes (Other)
  Sender: FDA-Public Use
  Company Number: US-PFIZER INC-202200348960

PATIENT
  Age: 35 Year
  Sex: Female
  Weight: 99.79 kg

DRUGS (3)
  1. DESVENLAFAXINE SUCCINATE [Suspect]
     Active Substance: DESVENLAFAXINE SUCCINATE
     Indication: Bipolar disorder
     Dosage: 50 MG, DAILY (50 MG PER DAY)
  2. DESVENLAFAXINE SUCCINATE [Suspect]
     Active Substance: DESVENLAFAXINE SUCCINATE
     Indication: Psychotic behaviour
  3. VENLAFAXINE [Concomitant]
     Active Substance: VENLAFAXINE HYDROCHLORIDE
     Dosage: UNK

REACTIONS (10)
  - Perinatal depression [Recovered/Resolved]
  - Gestational diabetes [Recovered/Resolved]
  - Exposure during pregnancy [Recovered/Resolved]
  - Off label use [Unknown]
  - Parvovirus infection [Recovered/Resolved]
  - Hypertension [Recovered/Resolved]
  - Obesity [Recovered/Resolved]
  - Bacterial infection [Recovered/Resolved]
  - Psychotic disorder [Recovered/Resolved]
  - Pregnancy with advanced maternal age [Recovered/Resolved]

NARRATIVE: CASE EVENT DATE: 20200101
